FAERS Safety Report 9850724 (Version 1)
Quarter: 2014Q1

REPORT INFORMATION
  Report Type: Report from Study
  Country: US (occurrence: US)
  Receive Date: 20140128
  Receipt Date: 20140128
  Transmission Date: 20141002
  Serious: Yes (Hospitalization, Other)
  Sender: FDA-Public Use
  Company Number: US-ABBVIE-14P-163-1192531-00

PATIENT
  Age: 55 Year
  Sex: Female

DRUGS (11)
  1. HUMIRA [Suspect]
     Indication: CROHN^S DISEASE
     Dates: start: 20131216, end: 20131216
  2. HUMIRA [Suspect]
     Dates: start: 20131230, end: 20131230
  3. PREDNISOLONE [Concomitant]
     Indication: PRODUCT USED FOR UNKNOWN INDICATION
     Dosage: TO RIGHT EYE
     Route: 047
  4. TIMOLOL [Concomitant]
     Indication: PRODUCT USED FOR UNKNOWN INDICATION
     Dosage: TO RIGHT EYE
  5. ASPIRIN [Concomitant]
     Indication: CEREBROVASCULAR ACCIDENT
  6. LISINOPRIL [Concomitant]
     Indication: HYPERTENSION
  7. ATORVASTATIN [Concomitant]
     Indication: BLOOD CHOLESTEROL INCREASED
  8. IRON [Concomitant]
     Indication: ANAEMIA
  9. PREDNISONE [Concomitant]
     Indication: CROHN^S DISEASE
     Dosage: (WEANING DOSE, STARTED AT 60MG)
  10. MESALAMINE [Concomitant]
     Indication: PRODUCT USED FOR UNKNOWN INDICATION
  11. TYLENOL [Concomitant]
     Indication: HEADACHE

REACTIONS (2)
  - Blindness [Recovering/Resolving]
  - Carotid endarterectomy [Recovering/Resolving]
